FAERS Safety Report 4626548-2 (Version None)
Quarter: 2005Q1

REPORT INFORMATION
  Report Type: 
  Country: None (occurrence: None)
  Receive Date: 20050330
  Receipt Date: 20050315
  Transmission Date: 20050727
  Serious: Yes (Hospitalization, Disabling, Other)
  Sender: FDA-Public Use
  Company Number: USA050393282

PATIENT
  Age: 68 Year
  Sex: Female
  Weight: 61 kg

DRUGS (2)
  1. HUMALOG [Suspect]
     Indication: DIABETES MELLITUS
     Dates: end: 19960101
  2. HUMULIN N [Suspect]
     Indication: DIABETES MELLITUS
     Dates: end: 19960101

REACTIONS (8)
  - DEVICE MALFUNCTION [None]
  - FALL [None]
  - GANGRENE [None]
  - HIP FRACTURE [None]
  - LEG AMPUTATION [None]
  - PHARMACEUTICAL PRODUCT COMPLAINT [None]
  - SKIN ULCER [None]
  - TOE AMPUTATION [None]
